FAERS Safety Report 10020897 (Version 1)
Quarter: 2014Q1

REPORT INFORMATION
  Report Type: Spontaneous
  Country: FR (occurrence: FR)
  Receive Date: 20140319
  Receipt Date: 20140319
  Transmission Date: 20141002
  Serious: Yes (Other)
  Sender: FDA-Public Use
  Company Number: FR-JNJFOC-20140306929

PATIENT
  Age: 25 Year
  Sex: Male

DRUGS (5)
  1. XEPLION [Suspect]
     Indication: PSYCHIATRIC DECOMPENSATION
     Route: 030
     Dates: start: 20140218
  2. XEPLION [Suspect]
     Indication: PSYCHIATRIC DECOMPENSATION
     Route: 030
     Dates: start: 20140121
  3. XEPLION [Suspect]
     Indication: PSYCHIATRIC DECOMPENSATION
     Dosage: D8 HAS BEEN PERFORMED ON 21-JAN AND THE NEXT INJECTION ON 18-FEB.
     Route: 030
     Dates: start: 20140114
  4. RISPERDAL [Concomitant]
     Dosage: BETWEEN 14-JAN AND 17-JAN
     Route: 065
     Dates: start: 20140114, end: 20140117
  5. VALIUM [Concomitant]
     Dosage: TAKEN BETWEEN 09-JAN AND 21-JAN
     Route: 048
     Dates: start: 20140109, end: 20140121

REACTIONS (4)
  - Nightmare [Unknown]
  - Akinesia [Unknown]
  - Akathisia [Unknown]
  - Bradyphrenia [Unknown]
